FAERS Safety Report 23797488 (Version 1)
Quarter: 2024Q2

REPORT INFORMATION
  Report Type: Report from Study
  Country: FR (occurrence: FR)
  Receive Date: 20240430
  Receipt Date: 20240430
  Transmission Date: 20240716
  Serious: Yes (Hospitalization)
  Sender: FDA-Public Use
  Company Number: FR-CELLTRION INC.-2024FR009713

PATIENT

DRUGS (8)
  1. BEVACIZUMAB [Suspect]
     Active Substance: BEVACIZUMAB
     Indication: Colorectal cancer metastatic
     Dosage: 587 MG
     Route: 065
     Dates: start: 20210719
  2. OXALIPLATIN [Suspect]
     Active Substance: OXALIPLATIN
     Indication: Colorectal cancer metastatic
     Dosage: 137.5 MG; 19/JUL/2021: LAST DOSE PRIOR TO SAE.
     Route: 042
     Dates: start: 20210628
  3. OXALIPLATIN [Suspect]
     Active Substance: OXALIPLATIN
     Dosage: 225 MG
     Route: 042
     Dates: start: 20210719
  4. DEVICE\YTTRIUM Y-90 [Suspect]
     Active Substance: DEVICE\YTTRIUM Y-90
     Indication: Colorectal cancer metastatic
     Dosage: 4515 MBQ
     Route: 042
     Dates: start: 20210721
  5. CAPECITABINE [Suspect]
     Active Substance: CAPECITABINE
     Indication: Colorectal cancer metastatic
     Dosage: 31/JUL/2021:DATE OF LAST DOSE (1300 MG)ADMINISTRATION PRIOR TO SAE. 5200 MG
     Route: 048
     Dates: start: 20210628
  6. ATEZOLIZUMAB [Suspect]
     Active Substance: ATEZOLIZUMAB
     Indication: Colorectal cancer metastatic
     Dosage: 1200 MG; 19/JUL/2021: LAST DOSE PRIOR TO SAE.
     Route: 042
     Dates: start: 20210628
  7. ATEZOLIZUMAB [Suspect]
     Active Substance: ATEZOLIZUMAB
     Dosage: 1200 MG
     Route: 042
     Dates: start: 20210719
  8. ESOMEPRAZOLE [Concomitant]
     Active Substance: ESOMEPRAZOLE
     Dosage: 40 MG
     Dates: start: 2021

REACTIONS (2)
  - Ill-defined disorder [Recovered/Resolved]
  - Vomiting [Not Recovered/Not Resolved]

NARRATIVE: CASE EVENT DATE: 20210731
